FAERS Safety Report 14165543 (Version 1)
Quarter: 2017Q4

REPORT INFORMATION
  Report Type: Report from Study
  Country: BR (occurrence: BR)
  Receive Date: 20171107
  Receipt Date: 20171107
  Transmission Date: 20180321
  Serious: Yes (Death)
  Sender: FDA-Public Use
  Company Number: PHHY2017BR163221

PATIENT
  Sex: Male
  Weight: 80 kg

DRUGS (1)
  1. VITALUX PLUS OMEGA 03 (ALC) [Suspect]
     Active Substance: MINERALS\OMEGA-3 FATTY ACIDS\VITAMINS
     Indication: EYE DISORDER
     Dosage: UNK UNK, QD
     Route: 048

REACTIONS (3)
  - Visual impairment [Unknown]
  - Kidney infection [Fatal]
  - Renal disorder [Fatal]
